FAERS Safety Report 7586101-8 (Version None)
Quarter: 2011Q2

REPORT INFORMATION
  Report Type: 
  Country: None (occurrence: None)
  Receive Date: 20110603
  Receipt Date: 20110428
  Transmission Date: 20111010
  Serious: No
  Sender: FDA-Public Use
  Company Number: 2011SP019584

PATIENT
  Age: 20 Year
  Sex: Female

DRUGS (4)
  1. XANAX [Concomitant]
  2. SAPHRIS [Suspect]
     Indication: BIPOLAR DISORDER
     Dosage: 5 MG;SL ; 10 MG;BID;SL
     Route: 060
     Dates: start: 20110101
  3. SAPHRIS [Suspect]
     Indication: BIPOLAR DISORDER
     Dosage: 5 MG;SL ; 10 MG;BID;SL
     Route: 060
     Dates: start: 20110301
  4. AMBIEN [Concomitant]

REACTIONS (1)
  - SWELLING FACE [None]
